FAERS Safety Report 17879010 (Version 3)
Quarter: 2021Q2

REPORT INFORMATION
  Report Type: Report from Study
  Country: BE (occurrence: BE)
  Receive Date: 20200610
  Receipt Date: 20210526
  Transmission Date: 20210717
  Serious: Yes (Other)
  Sender: FDA-Public Use
  Company Number: BE-BRISTOL-MYERS SQUIBB COMPANY-BMS-2020-045516

PATIENT
  Age: 65 Year
  Sex: Male

DRUGS (4)
  1. NIVOLUMAB [Suspect]
     Active Substance: NIVOLUMAB
     Indication: MALIGNANT MELANOMA
     Dosage: 240 MILLIGRAM
     Route: 042
     Dates: start: 20181011, end: 20190829
  2. DAFALGAN [Concomitant]
     Active Substance: ACETAMINOPHEN
     Indication: PRODUCT USED FOR UNKNOWN INDICATION
     Dosage: 1 GRAM, QD
     Route: 048
     Dates: start: 20201029
  3. D CURE [Concomitant]
     Indication: VITAMIN D DEFICIENCY
     Dosage: 1 CAPSULE DAILY
     Route: 048
     Dates: start: 20210107
  4. ROSUVASTATINE [ROSUVASTATIN] [Concomitant]
     Active Substance: ROSUVASTATIN
     Indication: BLOOD CHOLESTEROL INCREASED
     Dosage: 20 MILLIGRAM, QD
     Route: 048
     Dates: end: 20201229

REACTIONS (1)
  - Immune-mediated pancreatitis [Recovered/Resolved]

NARRATIVE: CASE EVENT DATE: 20190829
